FAERS Safety Report 22050225 (Version 1)
Quarter: 2023Q1

REPORT INFORMATION
  Report Type: Spontaneous
  Country: US (occurrence: None)
  Receive Date: 20230301
  Receipt Date: 20230301
  Transmission Date: 20230417
  Serious: Yes (Other)
  Sender: FDA-Public Use
  Company Number: 2023A044407

PATIENT
  Age: 955 Month
  Sex: Male
  Weight: 55.3 kg

DRUGS (1)
  1. SYMBICORT [Suspect]
     Active Substance: BUDESONIDE\FORMOTEROL FUMARATE DIHYDRATE
     Indication: Chronic obstructive pulmonary disease
     Route: 055

REACTIONS (7)
  - Gastrointestinal fungal infection [Unknown]
  - Pneumonia fungal [Unknown]
  - Fungal skin infection [Unknown]
  - Fungal pharyngitis [Unknown]
  - Anal fungal infection [Unknown]
  - Cough [Unknown]
  - Product use issue [Unknown]

NARRATIVE: CASE EVENT DATE: 20230201
